FAERS Safety Report 8186179-7 (Version None)
Quarter: 2012Q1

REPORT INFORMATION
  Report Type: 
  Country: None (occurrence: None)
  Receive Date: 20120306
  Receipt Date: 20120303
  Transmission Date: 20120608
  Serious: No
  Sender: FDA-Public Use
  Company Number: US-PFIZER INC-2012057138

PATIENT

DRUGS (1)
  1. PROTONIX [Suspect]
     Dosage: UNK
     Route: 042

REACTIONS (2)
  - APPLICATION SITE PAIN [None]
  - APPLICATION SITE ERYTHEMA [None]
